FAERS Safety Report 14695364 (Version 2)
Quarter: 2018Q2

REPORT INFORMATION
  Report Type: Spontaneous
  Country: US (occurrence: US)
  Receive Date: 20180329
  Receipt Date: 20180419
  Transmission Date: 20180711
  Serious: Yes (Hospitalization)
  Sender: FDA-Public Use
  Company Number: US-TAKEDA-2018TUS007626

PATIENT
  Age: 18 Year
  Sex: Male

DRUGS (3)
  1. CLARITIN [Concomitant]
     Active Substance: LORATADINE
     Indication: PREMEDICATION
     Dosage: 10 MG, UNK
     Route: 048
  2. ENTYVIO [Suspect]
     Active Substance: VEDOLIZUMAB
     Indication: COLITIS ULCERATIVE
     Dosage: 300 MG, UNK
     Route: 042
     Dates: start: 20180131
  3. ENTYVIO [Suspect]
     Active Substance: VEDOLIZUMAB
     Dosage: 300 MG, Q4WEEKS
     Route: 042
     Dates: start: 201803

REACTIONS (6)
  - Pain in extremity [Recovered/Resolved]
  - Off label use [Unknown]
  - Haemorrhage [Recovering/Resolving]
  - Diarrhoea haemorrhagic [Unknown]
  - Incorrect drug administration duration [Unknown]
  - Arthralgia [Unknown]

NARRATIVE: CASE EVENT DATE: 201803
